FAERS Safety Report 8012016-7 (Version None)
Quarter: 2011Q4

REPORT INFORMATION
  Report Type: 
  Country: None (occurrence: None)
  Receive Date: 20111228
  Receipt Date: 20111213
  Transmission Date: 20120403
  Serious: Yes (Hospitalization)
  Sender: FDA-Public Use
  Company Number: FR-GLAXOSMITHKLINE-B0768807A

PATIENT
  Age: 9 Year
  Sex: Female
  Weight: 30.5 kg

DRUGS (3)
  1. URBANYL [Concomitant]
     Route: 065
  2. VALPROATE SODIUM [Suspect]
     Indication: PARTIAL SEIZURES
     Dosage: 500MG TWICE PER DAY
     Route: 065
     Dates: start: 20090101
  3. LAMICTAL [Suspect]
     Indication: PARTIAL SEIZURES
     Dosage: 120MG TWICE PER DAY
     Route: 065
     Dates: start: 20090101

REACTIONS (7)
  - MALAISE [None]
  - VOMITING [None]
  - HEADACHE [None]
  - ABDOMINAL PAIN [None]
  - ANTICONVULSANT DRUG LEVEL ABOVE THERAPEUTIC [None]
  - ASTHENIA [None]
  - WEIGHT DECREASED [None]
